FAERS Safety Report 7011518-X (Version None)
Quarter: 2010Q3

REPORT INFORMATION
  Report Type: 
  Country: None (occurrence: None)
  Receive Date: 20100923
  Receipt Date: 20090216
  Transmission Date: 20110219
  Serious: No
  Sender: FDA-Public Use
  Company Number: US-WYE-H08248509

PATIENT
  Sex: Female
  Weight: 64.92 kg

DRUGS (1)
  1. PREMARIN [Suspect]
     Indication: VULVOVAGINAL DRYNESS
     Dosage: 1/2 APPLICATOR 1-2 TIMES A WEEK
     Route: 067
     Dates: start: 20090101

REACTIONS (2)
  - VAGINAL INFECTION [None]
  - VULVOVAGINAL PAIN [None]
